FAERS Safety Report 9209256 (Version 1)
Quarter: 2013Q1

REPORT INFORMATION
  Report Type: Spontaneous
  Country: US (occurrence: None)
  Receive Date: 20120820
  Receipt Date: 20120820
  Transmission Date: 20140127
  Serious: No
  Sender: FDA-Public Use
  Company Number: 1000037285

PATIENT
  Age: 40 Year
  Sex: Male

DRUGS (1)
  1. VIIBRYD [Suspect]

REACTIONS (5)
  - Irritability [None]
  - Insomnia [None]
  - Palpitations [None]
  - Hallucination [None]
  - Contusion [None]
